FAERS Safety Report 10012361 (Version 5)
Quarter: 2014Q2

REPORT INFORMATION
  Report Type: Report from Study
  Country: US (occurrence: US)
  Receive Date: 20140314
  Receipt Date: 20140620
  Transmission Date: 20141212
  Serious: Yes (Hospitalization)
  Sender: FDA-Public Use
  Company Number: US-BIOGENIDEC-2014BI019837

PATIENT
  Age: 43 Year
  Sex: Female
  Weight: 51 kg

DRUGS (17)
  1. TYSABRI [Suspect]
     Indication: RELAPSING-REMITTING MULTIPLE SCLEROSIS
     Route: 042
     Dates: start: 20131025, end: 20140131
  2. MILK OF MAGNESIA [Concomitant]
     Indication: CONSTIPATION PROPHYLAXIS
     Route: 048
     Dates: start: 20110101
  3. BIOTIN [Concomitant]
     Indication: ROUTINE HEALTH MAINTENANCE
     Route: 048
     Dates: start: 20100101
  4. BIOTIN [Concomitant]
     Indication: WEIGHT CONTROL
     Route: 048
     Dates: start: 20100101
  5. FOLIC ACID [Concomitant]
     Indication: ROUTINE HEALTH MAINTENANCE
     Route: 048
     Dates: start: 20100101
  6. L-LYSINE HCL [Concomitant]
     Indication: ROUTINE HEALTH MAINTENANCE
     Route: 048
     Dates: start: 20100101
  7. COLACE [Concomitant]
     Indication: CONSTIPATION PROPHYLAXIS
     Route: 048
     Dates: start: 20110101
  8. TUMS [Concomitant]
     Indication: MINERAL SUPPLEMENTATION
     Route: 048
     Dates: start: 20080101
  9. VITAMIN D3 [Concomitant]
     Indication: VITAMIN SUPPLEMENTATION
     Route: 060
     Dates: start: 20130501
  10. MAGNESIUM GLUCONATE [Concomitant]
     Indication: ROUTINE HEALTH MAINTENANCE
     Route: 048
     Dates: start: 20131018
  11. CO Q10 [Concomitant]
     Indication: ROUTINE HEALTH MAINTENANCE
     Route: 048
     Dates: start: 20131018
  12. FISH OIL [Concomitant]
     Indication: ROUTINE HEALTH MAINTENANCE
     Route: 048
     Dates: start: 20131018
  13. ZEGERID [Concomitant]
     Route: 048
     Dates: start: 20120101
  14. ACYCLOVIR [Concomitant]
     Indication: ORAL HERPES
     Route: 048
     Dates: start: 20100101
  15. ZYRTEC [Concomitant]
     Indication: SEASONAL ALLERGY
     Route: 048
     Dates: start: 20130904
  16. VESICARE [Concomitant]
     Indication: POLLAKIURIA
     Route: 048
     Dates: start: 201402
  17. ZOFRAN [Concomitant]
     Indication: NAUSEA
     Route: 048
     Dates: start: 20140224

REACTIONS (1)
  - Ileus [Recovered/Resolved]
